FAERS Safety Report 9831142 (Version 1)
Quarter: 2014Q1

REPORT INFORMATION
  Report Type: Spontaneous
  Country: US (occurrence: US)
  Receive Date: 20140121
  Receipt Date: 20140121
  Transmission Date: 20141002
  Serious: Yes (Other)
  Sender: FDA-Public Use
  Company Number: -SAAVPROD-CLOF-1002571

PATIENT
  Age: 20 Year
  Sex: Female

DRUGS (1)
  1. CLOFARABINE [Suspect]
     Indication: PRODUCT USED FOR UNKNOWN INDICATION
     Dosage: REDUCED DOSE, UNK
     Route: 065

REACTIONS (1)
  - Capillary leak syndrome [Unknown]
